FAERS Safety Report 25871856 (Version 1)
Quarter: 2025Q4

REPORT INFORMATION
  Report Type: Spontaneous
  Country: US (occurrence: US)
  Receive Date: 20251001
  Receipt Date: 20251001
  Transmission Date: 20260118
  Serious: Yes (Other)
  Sender: ABBVIE
  Company Number: US-ABBVIE-6482252

PATIENT
  Sex: Female

DRUGS (1)
  1. HUMIRA [Suspect]
     Active Substance: ADALIMUMAB
     Indication: Crohn^s disease
     Route: 058
     Dates: start: 2013, end: 2019

REACTIONS (4)
  - Intestinal ischaemia [Unknown]
  - Drug ineffective [Not Recovered/Not Resolved]
  - Gastrointestinal scarring [Unknown]
  - Intestinal stenosis [Unknown]
